FAERS Safety Report 7687491-8 (Version None)
Quarter: 2011Q3

REPORT INFORMATION
  Report Type: 
  Country: None (occurrence: None)
  Receive Date: 20110817
  Receipt Date: 20110809
  Transmission Date: 20111222
  Serious: Yes (Other)
  Sender: FDA-Public Use
  Company Number: US-BIOGENIDEC-2010BI001324

PATIENT
  Age: 62 Year
  Sex: Male

DRUGS (2)
  1. TYSABRI [Suspect]
     Indication: MULTIPLE SCLEROSIS
     Route: 042
     Dates: start: 20070502, end: 20100101
  2. TYSABRI [Suspect]
     Route: 042
     Dates: start: 20100422, end: 20100422

REACTIONS (4)
  - RENAL CYST [None]
  - BENIGN PROSTATIC HYPERPLASIA [None]
  - FATIGUE [None]
  - THYMIC CANCER METASTATIC [None]
